FAERS Safety Report 8802531 (Version 3)
Quarter: 2015Q1

REPORT INFORMATION
  Report Type: Report from Study
  Country: US (occurrence: US)
  Receive Date: 20120921
  Receipt Date: 20150323
  Transmission Date: 20150721
  Serious: Yes (Death)
  Sender: FDA-Public Use
  Company Number: US-ROCHE-1124281

PATIENT
  Age: 49 Year
  Sex: Female

DRUGS (18)
  1. VICODIN [Concomitant]
     Active Substance: ACETAMINOPHEN\HYDROCODONE BITARTRATE
     Route: 065
  2. SPIRIVA [Concomitant]
     Active Substance: TIOTROPIUM BROMIDE MONOHYDRATE
     Route: 065
  3. ALOXI [Concomitant]
     Active Substance: PALONOSETRON HYDROCHLORIDE
     Route: 042
  4. AVASTIN [Suspect]
     Active Substance: BEVACIZUMAB
     Indication: LUNG NEOPLASM MALIGNANT
     Route: 042
     Dates: start: 20090129
  5. TRAMADOL [Concomitant]
     Active Substance: TRAMADOL
     Route: 048
  6. RANITIDINE [Concomitant]
     Active Substance: RANITIDINE\RANITIDINE HYDROCHLORIDE
     Route: 065
  7. LEXAPRO [Concomitant]
     Active Substance: ESCITALOPRAM OXALATE
     Route: 048
  8. LORAZEPAM. [Concomitant]
     Active Substance: LORAZEPAM
     Route: 065
  9. NICOTINE. [Concomitant]
     Active Substance: NICOTINE
     Route: 065
  10. PHENERGAN [Concomitant]
     Active Substance: PROMETHAZINE HYDROCHLORIDE
     Route: 048
  11. PEPCID [Concomitant]
     Active Substance: FAMOTIDINE
     Route: 065
  12. CARBOPLATIN. [Concomitant]
     Active Substance: CARBOPLATIN
     Indication: HYPERSENSITIVITY
     Route: 065
  13. BENADRYL [Concomitant]
     Active Substance: DIPHENHYDRAMINE HYDROCHLORIDE
     Route: 048
  14. OXYCODONE [Concomitant]
     Active Substance: OXYCODONE
     Route: 048
  15. PROAIR HFA [Concomitant]
     Active Substance: ALBUTEROL SULFATE
     Route: 065
  16. DEXAMETHASONE. [Concomitant]
     Active Substance: DEXAMETHASONE
     Route: 042
  17. AVASTIN [Suspect]
     Active Substance: BEVACIZUMAB
     Indication: NON-SMALL CELL LUNG CANCER
     Route: 042
     Dates: start: 20100617, end: 20110106
  18. TAXOL [Concomitant]
     Active Substance: PACLITAXEL
     Route: 065

REACTIONS (17)
  - Blood glucose increased [Unknown]
  - Death [Fatal]
  - Chest discomfort [Unknown]
  - Thrombocytopenia [Unknown]
  - Nausea [Unknown]
  - Bone pain [Unknown]
  - Arthralgia [Unknown]
  - Neuropathy peripheral [Unknown]
  - Back pain [Unknown]
  - Alopecia [Unknown]
  - Erythema [Unknown]
  - Adenocarcinoma [Unknown]
  - Cough [Unknown]
  - Musculoskeletal chest pain [Unknown]
  - Flushing [Unknown]
  - Fatigue [Unknown]
  - Rash [Unknown]

NARRATIVE: CASE EVENT DATE: 20110106
